FAERS Safety Report 9898932 (Version 2)
Quarter: 2014Q1

REPORT INFORMATION
  Report Type: Spontaneous
  Country: US (occurrence: US)
  Receive Date: 20140214
  Receipt Date: 20140306
  Transmission Date: 20141002
  Serious: Yes (Hospitalization)
  Sender: FDA-Public Use
  Company Number: US-GLAXOSMITHKLINE-A1034785A

PATIENT
  Age: 54 Year
  Sex: Female

DRUGS (2)
  1. AVANDAMET [Suspect]
     Indication: DIABETES MELLITUS
     Route: 048
     Dates: start: 20040319, end: 20070410
  2. AVANDIA [Suspect]
     Route: 048
     Dates: start: 20050705, end: 20060710

REACTIONS (2)
  - Diastolic dysfunction [Unknown]
  - Coronary artery disease [Unknown]
